FAERS Safety Report 14089368 (Version 5)
Quarter: 2017Q4

REPORT INFORMATION
  Report Type: Spontaneous
  Country: TR (occurrence: TR)
  Receive Date: 20171014
  Receipt Date: 20171107
  Transmission Date: 20180321
  Serious: Yes (Death, Hospitalization, Other)
  Sender: FDA-Public Use
  Company Number: TR-AMGEN-TURSP2017154689

PATIENT
  Age: 55 Year
  Sex: Female
  Weight: 101.2 kg

DRUGS (9)
  1. APIDRA SOLOSTAR [Concomitant]
     Active Substance: INSULIN GLULISINE
     Indication: TYPE 1 DIABETES MELLITUS
     Dosage: 100 U/ML, 60 U/DAY
  2. EPOBEL [Concomitant]
     Indication: CHRONIC KIDNEY DISEASE
     Dosage: 50000IU/0.56ML, 3 TIMES/WK
     Dates: start: 20170816
  3. ARANESP [Suspect]
     Active Substance: DARBEPOETIN ALFA
     Indication: ANAEMIA
     Dosage: 80 MCG, QWK
     Route: 058
     Dates: start: 20170712, end: 20170811
  4. DODEX [Concomitant]
     Active Substance: CYANOCOBALAMIN
     Indication: VITAMIN B12 DEFICIENCY
     Dosage: 1000 MCG, QMO
     Dates: start: 201701
  5. DEMROSE [Concomitant]
     Indication: CHRONIC KIDNEY DISEASE
     Dosage: 100 MG/5ML, QWK
     Dates: start: 201701, end: 20170811
  6. DODEX [Concomitant]
     Active Substance: CYANOCOBALAMIN
     Indication: CHRONIC KIDNEY DISEASE
  7. DEMROSE [Concomitant]
     Indication: ANAEMIA
  8. PHOS NO [Concomitant]
     Indication: CHRONIC KIDNEY DISEASE
     Dosage: 1000 MG, TID
     Dates: start: 201701
  9. ALATAB [Concomitant]
     Dosage: 600 MG, QD

REACTIONS (3)
  - Cardiac arrest [Fatal]
  - Dialysis [Unknown]
  - Myocardial infarction [Fatal]

NARRATIVE: CASE EVENT DATE: 2017
